FAERS Safety Report 10648488 (Version 1)
Quarter: 2014Q4

REPORT INFORMATION
  Report Type: Spontaneous
  Country: US (occurrence: US)
  Receive Date: 20141212
  Receipt Date: 20141212
  Transmission Date: 20150529
  Serious: No
  Sender: FDA-Public Use
  Company Number: US-SHIRE-US201408094

PATIENT
  Age: 9 Year
  Sex: Male
  Weight: 34.14 kg

DRUGS (3)
  1. INTUNIV [Suspect]
     Active Substance: GUANFACINE HYDROCHLORIDE
     Indication: PRODUCT USED FOR UNKNOWN INDICATION
     Dosage: 1 MG, 1X/DAY:QD (AT BEDTIME)
     Route: 048
     Dates: start: 201401, end: 20141015
  2. DAYTRANA [Concomitant]
     Active Substance: METHYLPHENIDATE
     Indication: ATTENTION DEFICIT/HYPERACTIVITY DISORDER
     Dosage: 15 MG, UNKNOWN
     Route: 065
  3. INTUNIV [Suspect]
     Active Substance: GUANFACINE HYDROCHLORIDE
     Dosage: 2 MG, 1X/DAY:QD (AT BEDTIME)
     Route: 048
     Dates: start: 20141015

REACTIONS (2)
  - Insomnia [Not Recovered/Not Resolved]
  - Disturbance in social behaviour [Unknown]

NARRATIVE: CASE EVENT DATE: 2014
